FAERS Safety Report 23482628 (Version 1)
Quarter: 2024Q1

REPORT INFORMATION
  Report Type: Spontaneous
  Country: US (occurrence: None)
  Receive Date: 20240204
  Receipt Date: 20240204
  Transmission Date: 20240409
  Serious: Yes (Life-Threatening, Hospitalization, Disabling)
  Sender: FDA-Public Use
  Company Number: None

PATIENT
  Age: 21 Year
  Sex: Male
  Weight: 76.5 kg

DRUGS (2)
  1. PROPECIA [Suspect]
     Active Substance: FINASTERIDE
     Indication: Androgenetic alopecia
     Dosage: FREQUENCY : DAILY;?
     Route: 048
     Dates: start: 20230301, end: 20230822
  2. PAXIL [Concomitant]
     Active Substance: PAROXETINE HYDROCHLORIDE

REACTIONS (12)
  - Quality of life decreased [None]
  - Therapy cessation [None]
  - Panic attack [None]
  - Anhedonia [None]
  - Erectile dysfunction [None]
  - Depression [None]
  - Suicidal ideation [None]
  - Vitreous floaters [None]
  - Headache [None]
  - Musculoskeletal disorder [None]
  - Muscle atrophy [None]
  - Testicular atrophy [None]

NARRATIVE: CASE EVENT DATE: 20230929
